FAERS Safety Report 5849169-2 (Version None)
Quarter: 2008Q3

REPORT INFORMATION
  Report Type: 
  Country: None (occurrence: None)
  Receive Date: 20080819
  Receipt Date: 20080808
  Transmission Date: 20090109
  Serious: Yes (Hospitalization)
  Sender: FDA-Public Use
  Company Number: DE-JNJFOC-20080802083

PATIENT
  Age: 74 Year
  Sex: Male

DRUGS (11)
  1. LEVOFLOXACIN [Suspect]
     Indication: PROPHYLAXIS
     Route: 048
  2. DOCETAXEL [Suspect]
     Indication: NON-SMALL CELL LUNG CANCER
     Dosage: CYCLICALLY
     Route: 042
  3. CARBOPLATIN [Suspect]
     Indication: NON-SMALL CELL LUNG CANCER
     Dosage: CYCLICALLY
     Route: 042
  4. PLACEBO [Suspect]
     Indication: PROPHYLAXIS
     Route: 048
  5. NOVALGIN [Concomitant]
     Indication: PAIN
     Route: 048
  6. TRAMAL LONG [Concomitant]
     Indication: PAIN
     Route: 048
  7. METOPROLOL TARTRATE [Concomitant]
     Indication: PROPHYLAXIS
     Dosage: 1 UNSPECIFIED UNIT/DAY
     Route: 048
  8. TOREM [Concomitant]
     Indication: CORONARY ARTERY DISEASE
     Dosage: 10 UNSPECIFIED UNIT/DAY
     Route: 048
  9. SPIRIVA [Concomitant]
     Indication: CHRONIC OBSTRUCTIVE PULMONARY DISEASE
     Dosage: 1 UNSPECIFIED UNIT/DAY
     Route: 065
  10. FORADIL [Concomitant]
     Indication: PAIN
     Dosage: 2 UNSPECIFIED UNIT/DAY
     Route: 065
  11. ENOXAPARIN SODIUM [Concomitant]
     Indication: PROPHYLAXIS
     Dosage: DOSE: 0.5 UNSPECIFIED UNIT/DAY
     Route: 058

REACTIONS (2)
  - CARDIAC FAILURE [None]
  - CLOSTRIDIUM DIFFICILE COLITIS [None]
